FAERS Safety Report 8821052 (Version 2)
Quarter: 2015Q3

REPORT INFORMATION
  Report Type: Report from Study
  Country: US (occurrence: US)
  Receive Date: 20121002
  Receipt Date: 20150702
  Transmission Date: 20151125
  Serious: Yes (Death, Hospitalization, Disabling, Other)
  Sender: FDA-Public Use
  Company Number: US-ROCHE-1135766

PATIENT
  Age: 56 Year
  Sex: Female

DRUGS (8)
  1. PREDNISONE. [Concomitant]
     Active Substance: PREDNISONE
  2. POTASSIUM CHLORIDE. [Concomitant]
     Active Substance: POTASSIUM CHLORIDE
     Route: 042
  3. RITUXAN [Suspect]
     Active Substance: RITUXIMAB
     Indication: PULMONARY GRANULOMA
     Route: 042
  4. ATIVAN [Concomitant]
     Active Substance: LORAZEPAM
  5. RITUXAN [Suspect]
     Active Substance: RITUXIMAB
     Indication: GRANULOMATOSIS WITH POLYANGIITIS
     Route: 042
  6. MORPHINE [Concomitant]
     Active Substance: MORPHINE
  7. CYTOXAN [Concomitant]
     Active Substance: CYCLOPHOSPHAMIDE
  8. POTASSIUM CHLORIDE. [Concomitant]
     Active Substance: POTASSIUM CHLORIDE
     Route: 042

REACTIONS (13)
  - Malaise [Unknown]
  - Mental status changes [Unknown]
  - Depressed level of consciousness [Unknown]
  - Off label use [Unknown]
  - Death [Fatal]
  - Coma [Unknown]
  - Central nervous system lesion [Unknown]
  - Disease progression [Unknown]
  - Sepsis [Unknown]
  - Lung infiltration [Unknown]
  - Abscess [Unknown]
  - Lethargy [Unknown]
  - Pancytopenia [Unknown]

NARRATIVE: CASE EVENT DATE: 20080701
